FAERS Safety Report 10159204 (Version 1)
Quarter: 2014Q2

REPORT INFORMATION
  Report Type: Spontaneous
  Country: US (occurrence: None)
  Receive Date: 20140507
  Receipt Date: 20140507
  Transmission Date: 20141212
  Serious: No
  Sender: FDA-Public Use
  Company Number: None

PATIENT
  Age: 58 Year
  Sex: Male
  Weight: 114.5 kg

DRUGS (1)
  1. INTRON A [Suspect]
     Dosage: 771.8 MU, DOSE IS IN MILLION UNITS (MU)
     Dates: end: 20140429

REACTIONS (1)
  - Blood triglycerides increased [None]
